FAERS Safety Report 5239128-5 (Version None)
Quarter: 2007Q1

REPORT INFORMATION
  Report Type: 
  Country: None (occurrence: None)
  Receive Date: 20061208
  Receipt Date: 20050504
  Transmission Date: 20070707
  Serious: Yes (Other)
  Sender: FDA-Public Use
  Company Number: 2005UW07167

PATIENT

DRUGS (1)
  1. CRESTOR [Suspect]

REACTIONS (1)
  - LIBIDO DECREASED [None]
